FAERS Safety Report 4687746-5 (Version None)
Quarter: 2005Q2

REPORT INFORMATION
  Report Type: 
  Country: None (occurrence: None)
  Receive Date: 20050608
  Receipt Date: 20050608
  Transmission Date: 20051028
  Serious: Yes (Hospitalization)
  Sender: FDA-Public Use
  Company Number: None

PATIENT
  Age: 94 Year
  Sex: Female
  Weight: 56.7 kg

DRUGS (9)
  1. LIPITOR [Suspect]
     Indication: BLOOD CHOLESTEROL INCREASED
     Dosage: ?
     Route: 065
     Dates: start: 20050211, end: 20050301
  2. ASPIRIN [Concomitant]
  3. ATACAND [Concomitant]
  4. LASIX [Concomitant]
  5. SLO-MAG [Concomitant]
  6. METOPROLOL [Concomitant]
  7. NYSTATIN PWDR [Concomitant]
  8. MULTI-VITAMIN [Concomitant]
  9. QUININE SULFATE [Concomitant]

REACTIONS (5)
  - ABDOMINAL PAIN [None]
  - ASTHENIA [None]
  - JAUNDICE [None]
  - LIVER FUNCTION TEST ABNORMAL [None]
  - PRURITUS [None]
